FAERS Safety Report 7870043-4 (Version None)
Quarter: 2011Q4

REPORT INFORMATION
  Report Type: 
  Country: None (occurrence: None)
  Receive Date: 20111028
  Receipt Date: 20110112
  Transmission Date: 20120403
  Serious: No
  Sender: FDA-Public Use
  Company Number: US-AMGEN-USASP2011002106

PATIENT
  Sex: Female

DRUGS (2)
  1. ENBREL [Suspect]
     Indication: CREST SYNDROME
  2. ENBREL [Suspect]
     Indication: RHEUMATOID ARTHRITIS
     Dosage: 50 MG, QWK
     Dates: start: 20101212

REACTIONS (1)
  - URINARY TRACT INFECTION [None]
